FAERS Safety Report 25258984 (Version 1)
Quarter: 2025Q2

REPORT INFORMATION
  Report Type: Spontaneous
  Country: GB (occurrence: GB)
  Receive Date: 20250501
  Receipt Date: 20250501
  Transmission Date: 20250716
  Serious: Yes (Disabling, Other)
  Sender: ACCORD
  Company Number: None

PATIENT
  Age: 25 Year
  Sex: Male
  Weight: 75 kg

DRUGS (1)
  1. FINASTERIDE [Suspect]
     Active Substance: FINASTERIDE
     Indication: Androgenetic alopecia
     Dates: end: 20240301

REACTIONS (3)
  - Panic attack [Recovered/Resolved]
  - Depression [Recovered/Resolved]
  - Anorgasmia [Recovering/Resolving]

NARRATIVE: CASE EVENT DATE: 20230808
